FAERS Safety Report 9824444 (Version 2)
Quarter: 2014Q1

REPORT INFORMATION
  Report Type: Spontaneous
  Country: US (occurrence: US)
  Receive Date: 20140116
  Receipt Date: 20140116
  Transmission Date: 20141002
  Serious: No
  Sender: FDA-Public Use
  Company Number: US-GILEAD-2011-0039804

PATIENT
  Age: 57 Year
  Sex: Male

DRUGS (5)
  1. LETAIRIS [Suspect]
     Indication: PULMONARY HYPERTENSION
     Route: 048
     Dates: start: 20110420
  2. LETAIRIS [Suspect]
     Indication: LIVER DISORDER
  3. REMODULIN [Concomitant]
  4. REVATIO [Concomitant]
  5. LASIX [Concomitant]

REACTIONS (2)
  - Fluid retention [Recovered/Resolved]
  - Urticaria [Unknown]
